FAERS Safety Report 14646658 (Version 2)
Quarter: 2018Q2

REPORT INFORMATION
  Report Type: Spontaneous
  Country: US (occurrence: US)
  Receive Date: 20180316
  Receipt Date: 20180426
  Transmission Date: 20180711
  Serious: No
  Sender: FDA-Public Use
  Company Number: US-TEVA-2018-US-862951

PATIENT
  Sex: Male

DRUGS (1)
  1. FENTANYL. [Suspect]
     Active Substance: FENTANYL
     Indication: SPINAL OPERATION
     Route: 062

REACTIONS (8)
  - Product use in unapproved indication [Unknown]
  - Product adhesion issue [Unknown]
  - Ejaculation failure [Unknown]
  - Drug effect decreased [Unknown]
  - Abdominal pain upper [Unknown]
  - Depression [Unknown]
  - Withdrawal syndrome [Unknown]
  - Drug ineffective [Unknown]
